FAERS Safety Report 6672101-9 (Version None)
Quarter: 2010Q2

REPORT INFORMATION
  Report Type: 
  Country: None (occurrence: None)
  Receive Date: 20100407
  Receipt Date: 20100407
  Transmission Date: 20101027
  Serious: Yes (Disabling)
  Sender: FDA-Public Use
  Company Number: None

PATIENT
  Age: 40 Year
  Sex: Female
  Weight: 79.3795 kg

DRUGS (1)
  1. LEXAPRO [Suspect]
     Indication: POSTPARTUM DEPRESSION
     Dates: start: 20100120, end: 20100406

REACTIONS (1)
  - ALOPECIA AREATA [None]
